FAERS Safety Report 10335380 (Version 1)
Quarter: 2014Q3

REPORT INFORMATION
  Report Type: Spontaneous
  Country: FR (occurrence: None)
  Receive Date: 20140721
  Receipt Date: 20140721
  Transmission Date: 20150326
  Serious: Yes (Hospitalization)
  Sender: FDA-Public Use
  Company Number: AUR-APL-2014-07676

PATIENT
  Age: 52 Year
  Sex: Male

DRUGS (7)
  1. AMAREL (GLIMEPIRIDE) [Suspect]
     Active Substance: GLIMEPIRIDE
     Indication: TYPE 2 DIABETES MELLITUS
     Dosage: 1 DF, DAILY, ORAL
     Route: 048
  2. TRIATEC /00116401/ [Concomitant]
     Active Substance: HYDROCHLOROTHIAZIDE
     Route: 048
     Dates: start: 20131215, end: 201404
  3. APROVEL (IRBESARTAN) [Concomitant]
  4. METFORMIN 1000MG (METFORMIN) UNKNOWN, 1000MG [Suspect]
     Active Substance: METFORMIN HYDROCHLORIDE
     Indication: TYPE 2 DIABETES MELLITUS
     Route: 048
  5. BYETTA [Suspect]
     Active Substance: EXENATIDE
     Indication: TYPE 2 DIABETES MELLITUS
     Dates: start: 2011, end: 20140420
  6. CRESTOR [Suspect]
     Active Substance: ROSUVASTATIN CALCIUM
     Indication: DYSLIPIDAEMIA
     Route: 048
  7. GLUCOR (ACARBOSE) [Concomitant]

REACTIONS (1)
  - Oedematous pancreatitis [None]

NARRATIVE: CASE EVENT DATE: 20140417
